FAERS Safety Report 8737581 (Version 2)
Quarter: 2013Q4

REPORT INFORMATION
  Report Type: Spontaneous
  Country: US (occurrence: US)
  Receive Date: 20120822
  Receipt Date: 20131101
  Transmission Date: 20140711
  Serious: No
  Sender: FDA-Public Use
  Company Number: US-009507513-1207USA007656

PATIENT
  Age: 18 Year
  Sex: Female

DRUGS (2)
  1. NUVARING [Suspect]
     Indication: CONTRACEPTION
     Dosage: 3 WEEKS IN, 2 WEEK OUT
     Route: 067
     Dates: start: 201107
  2. CORTICOSTEROIDS (UNSPECIFIED) [Concomitant]
     Dosage: UNK

REACTIONS (1)
  - Metrorrhagia [Unknown]
